FAERS Safety Report 6811488-0 (Version None)
Quarter: 2010Q2

REPORT INFORMATION
  Report Type: 
  Country: None (occurrence: None)
  Receive Date: 20100629
  Receipt Date: 20100629
  Transmission Date: 20101027
  Serious: Yes (Hospitalization)
  Sender: FDA-Public Use
  Company Number: None

PATIENT
  Sex: Female
  Weight: 89.8122 kg

DRUGS (1)
  1. HUMIRA [Suspect]
     Indication: CROHN'S DISEASE
     Dosage: 40MG/0.8ML EVERY OTHER WEEK SQ
     Route: 058
     Dates: start: 20100526, end: 20100603

REACTIONS (2)
  - ABSCESS INTESTINAL [None]
  - INTESTINAL PERFORATION [None]
